FAERS Safety Report 6313144-4 (Version None)
Quarter: 2009Q3

REPORT INFORMATION
  Report Type: 
  Country: None (occurrence: None)
  Receive Date: 20090818
  Receipt Date: 20090807
  Transmission Date: 20100115
  Serious: Yes (Hospitalization)
  Sender: FDA-Public Use
  Company Number: BR-NOVOPROD-288100

PATIENT
  Age: 53 Year
  Sex: Female

DRUGS (6)
  1. NOVOLOG MIX 70/30 [Suspect]
     Indication: TYPE 2 DIABETES MELLITUS
     Dosage: 28U+28U+24U
     Dates: end: 20090517
  2. NOVOLOG MIX 70/30 [Suspect]
     Route: 058
  3. NOVOLOG MIX 70/30 [Suspect]
     Dosage: 80
  4. PROPRANOLOL [Concomitant]
     Indication: HYPERTENSION
     Dosage: 10 MG, QD
  5. PROPRANOLOL [Concomitant]
     Dosage: 40 MG, QD
  6. LISINOPRIL [Concomitant]
     Indication: HYPERTENSION
     Dosage: 10 MG, QD

REACTIONS (6)
  - BLOOD GLUCOSE INCREASED [None]
  - CONDITION AGGRAVATED [None]
  - DISCOMFORT [None]
  - DRUG INEFFECTIVE [None]
  - HYPERTENSION [None]
  - PRODUCT QUALITY ISSUE [None]
